FAERS Safety Report 17809637 (Version 9)
Quarter: 2021Q4

REPORT INFORMATION
  Report Type: Report from Study
  Country: CA (occurrence: CA)
  Receive Date: 20200520
  Receipt Date: 20211012
  Transmission Date: 20220303
  Serious: Yes (Other)
  Sender: FDA-Public Use
  Company Number: NVSC2020CA051416

PATIENT
  Age: 31 Year
  Sex: Male

DRUGS (14)
  1. XOLAIR [Suspect]
     Active Substance: OMALIZUMAB
     Indication: Chronic spontaneous urticaria
     Dosage: 300 MG, EVERY 3 WEEKS
     Route: 058
     Dates: start: 20180604
  2. XOLAIR [Suspect]
     Active Substance: OMALIZUMAB
     Dosage: 300 MG, EVERY 3 WEEKS
     Route: 065
     Dates: start: 20200123
  3. XOLAIR [Suspect]
     Active Substance: OMALIZUMAB
     Dosage: 300 MG, EVERY 3 WEEKS
     Route: 058
     Dates: start: 20200213
  4. XOLAIR [Suspect]
     Active Substance: OMALIZUMAB
     Dosage: 300 MG, EVERY 3 WEEKS
     Route: 065
     Dates: start: 20200424
  5. XOLAIR [Suspect]
     Active Substance: OMALIZUMAB
     Dosage: 300 MG, EVERY 3 WEEKS
     Route: 058
     Dates: start: 20210415
  6. XOLAIR [Suspect]
     Active Substance: OMALIZUMAB
     Dosage: 300 MG, EVERY 3 WEEKS
     Route: 058
  7. PREDNISONE [Suspect]
     Active Substance: PREDNISONE
     Indication: Product used for unknown indication
     Dosage: 60 MG, QD
     Route: 065
  8. PREDNISONE [Suspect]
     Active Substance: PREDNISONE
     Dosage: 20 MG, QD
     Route: 065
  9. LORAZEPAM [Concomitant]
     Active Substance: LORAZEPAM
     Indication: Anxiety
     Dosage: 1 DF, QD
     Route: 065
     Dates: start: 2011
  10. RABEPRAZOLE [Concomitant]
     Active Substance: RABEPRAZOLE
     Indication: Ulcer
     Dosage: 1 DF, BID
     Route: 065
     Dates: start: 201802
  11. RANITIDINE [Concomitant]
     Active Substance: RANITIDINE
     Indication: Ulcer
     Dosage: 1 DF, QD
     Route: 065
     Dates: start: 201801
  12. ZENHALE [Concomitant]
     Active Substance: FORMOTEROL FUMARATE\MOMETASONE FUROATE
     Indication: Product used for unknown indication
     Dosage: UNK, BID
     Route: 065
  13. ZITHROMAX [Concomitant]
     Active Substance: AZITHROMYCIN DIHYDRATE
     Indication: Prophylaxis
     Dosage: UNK
     Route: 065
  14. TWINRIX [Concomitant]
     Active Substance: HEPATITIS A VIRUS STRAIN HM175 ANTIGEN (FORMALDEHYDE INACTIVATED)\HEPATITIS B VIRUS SUBTYPE ADW2 HBS
     Indication: Product used for unknown indication
     Dosage: UNK
     Route: 065

REACTIONS (26)
  - Pneumonia [Recovering/Resolving]
  - Hepatitis [Unknown]
  - Urticaria [Unknown]
  - Fall [Unknown]
  - Ligament sprain [Unknown]
  - Ligament rupture [Unknown]
  - Discomfort [Unknown]
  - Chest discomfort [Recovering/Resolving]
  - Asthma [Unknown]
  - Anxiety [Unknown]
  - Weight increased [Unknown]
  - Hepatic steatosis [Unknown]
  - Contusion [Unknown]
  - Nausea [Unknown]
  - Vomiting [Unknown]
  - Constipation [Unknown]
  - COVID-19 [Unknown]
  - Dyspnoea [Unknown]
  - Infection [Unknown]
  - Illness [Unknown]
  - Pyrexia [Unknown]
  - Chills [Unknown]
  - Hypersensitivity [Unknown]
  - Paternal exposure during pregnancy [Unknown]
  - Inappropriate schedule of product administration [Unknown]
  - Therapeutic product effect decreased [Unknown]

NARRATIVE: CASE EVENT DATE: 20200201
